FAERS Safety Report 9074990 (Version 1)
Quarter: 2013Q1

REPORT INFORMATION
  Report Type: Spontaneous
  Country: US (occurrence: US)
  Receive Date: 20130128
  Receipt Date: 20130128
  Transmission Date: 20140127
  Serious: No
  Sender: FDA-Public Use
  Company Number: US-GLAXOSMITHKLINE-A1001319A

PATIENT
  Age: 51 Year
  Sex: Female

DRUGS (3)
  1. MEPRON [Suspect]
     Indication: PNEUMOCYSTIS JIROVECII PNEUMONIA
     Dosage: 750MG TWICE PER DAY
     Route: 048
     Dates: start: 201210
  2. ZITHROMAX [Concomitant]
  3. ATRIPLA [Concomitant]

REACTIONS (3)
  - Abdominal pain upper [Recovering/Resolving]
  - Abdominal distension [Unknown]
  - Diarrhoea [Unknown]
